FAERS Safety Report 8519535-5 (Version None)
Quarter: 2012Q3

REPORT INFORMATION
  Report Type: 
  Country: None (occurrence: None)
  Receive Date: 20120718
  Receipt Date: 20120627
  Transmission Date: 20120928
  Serious: Yes (Other)
  Sender: FDA-Public Use
  Company Number: PHHY2011JP108719

PATIENT
  Age: 62 Year
  Sex: Male
  Weight: 60 kg

DRUGS (3)
  1. AFINITOR [Suspect]
     Indication: METASTATIC RENAL CELL CARCINOMA
     Dosage: 10 MG, UNK
     Route: 048
     Dates: start: 20110902, end: 20110930
  2. NEO-MERCAZOLE TAB [Concomitant]
     Dosage: 5 MG, UNK
     Route: 048
     Dates: start: 20111104
  3. AFINITOR [Suspect]
     Dosage: 5 MG DAILY
     Route: 048
     Dates: start: 20110930

REACTIONS (2)
  - BLOOD CREATINE INCREASED [None]
  - GLOMERULAR FILTRATION RATE DECREASED [None]
